FAERS Safety Report 15243104 (Version 9)
Quarter: 2019Q4

REPORT INFORMATION
  Report Type: Spontaneous
  Country: US (occurrence: US)
  Receive Date: 20180806
  Receipt Date: 20191230
  Transmission Date: 20200122
  Serious: Yes (Other)
  Sender: FDA-Public Use
  Company Number: US-PFIZER INC-2014125014

PATIENT
  Age: 88 Year
  Sex: Female
  Weight: 54.42 kg

DRUGS (2)
  1. XALATAN [Suspect]
     Active Substance: LATANOPROST
     Dosage: 1 GTT, ONCE DAILY (1 DROP EACH EYE)
     Route: 047
  2. XALATAN [Suspect]
     Active Substance: LATANOPROST
     Dosage: 1 GTT, ONCE DAILY (1 DROP EACH EYE)
     Route: 047

REACTIONS (10)
  - Malaise [Unknown]
  - Drug ineffective [Unknown]
  - Pharyngeal disorder [Unknown]
  - Upper limb fracture [Unknown]
  - Eye disorder [Unknown]
  - Intraocular pressure increased [Unknown]
  - Feeling abnormal [Unknown]
  - Product container issue [Unknown]
  - Hypoacusis [Unknown]
  - Visual impairment [Unknown]
